FAERS Safety Report 6407009-7 (Version None)
Quarter: 2009Q4

REPORT INFORMATION
  Report Type: 
  Country: None (occurrence: None)
  Receive Date: 20091020
  Receipt Date: 20091008
  Transmission Date: 20100525
  Serious: Yes (Hospitalization)
  Sender: FDA-Public Use
  Company Number: PHHY2009CL43802

PATIENT
  Age: 78 Year
  Sex: Male

DRUGS (2)
  1. EXELON [Suspect]
     Indication: SENILE DEMENTIA
     Dosage: 1 PATCH/DAY
     Route: 062
  2. ACENOCOUMAROL [Concomitant]

REACTIONS (1)
  - LUNG DISORDER [None]
